FAERS Safety Report 25124547 (Version 1)
Quarter: 2025Q1

REPORT INFORMATION
  Report Type: Spontaneous
  Country: CN (occurrence: CN)
  Receive Date: 20250326
  Receipt Date: 20250326
  Transmission Date: 20250408
  Serious: Yes (Other)
  Sender: SANOFI AVENTIS
  Company Number: CN-SA-2025SA084894

PATIENT
  Age: 36 Year
  Sex: Female
  Weight: 58 kg

DRUGS (1)
  1. ZOLPIDEM TARTRATE [Suspect]
     Active Substance: ZOLPIDEM TARTRATE
     Indication: Sleep disorder
     Dosage: 10 MG, QD
     Route: 048
     Dates: start: 20250311, end: 20250312

REACTIONS (3)
  - Loss of consciousness [Recovering/Resolving]
  - Feeling abnormal [Recovering/Resolving]
  - Amnesia [Recovering/Resolving]

NARRATIVE: CASE EVENT DATE: 20250311
